FAERS Safety Report 21357320 (Version 2)
Quarter: 2022Q3

REPORT INFORMATION
  Report Type: Spontaneous
  Country: DE (occurrence: DE)
  Receive Date: 20220921
  Receipt Date: 20220927
  Transmission Date: 20221027
  Serious: Yes (Hospitalization, Other)
  Sender: FDA-Public Use
  Company Number: DE-ADRED-05437-01

PATIENT
  Age: 74 Year
  Sex: Male

DRUGS (13)
  1. CEFUROXIME [Suspect]
     Active Substance: CEFUROXIME
     Indication: Product used for unknown indication
     Dosage: 500 MILLIGRAM, TWO TIMES A DAY (500 MG, 1-0-1-0, TABLETTEN)
     Route: 048
  2. DEXAMETHASONE SODIUM PHOSPHATE [Suspect]
     Active Substance: DEXAMETHASONE SODIUM PHOSPHATE
     Indication: Product used for unknown indication
     Dosage: TWO TIMES A DAY (1-0-1-0, TROPFEN)
  3. CYCLOSPORINE [Suspect]
     Active Substance: CYCLOSPORINE
     Indication: Product used for unknown indication
     Dosage: 1 MILLIGRAM PER MILLILETER, ONCE A DAY(1 MG/ML, 0-0-1-0, TROPFEN)
  4. AMLODIPINE BESYLATE [Concomitant]
     Active Substance: AMLODIPINE BESYLATE
     Indication: Product used for unknown indication
     Dosage: 5 MILLIGRAM, ONCE A DAY(5 MG, 0-0-1-0, TABLETTEN)
     Route: 048
  5. ATORVASTATIN [Concomitant]
     Active Substance: ATORVASTATIN
     Indication: Product used for unknown indication
     Dosage: 20 MILLIGRAM, ONCE A DAY(20 MG, 0-0-1-0, TABLETTEN )
     Route: 048
  6. DORZOLAMIDE HYDROCHLORIDE\TIMOLOL MALEATE [Concomitant]
     Active Substance: DORZOLAMIDE HYDROCHLORIDE\TIMOLOL MALEATE
     Indication: Product used for unknown indication
     Dosage: UNK, TWO TIMES A DAY(20|5 MG/ML, 1-0-1-0, TROPFEN )
  7. LATANOPROST [Concomitant]
     Active Substance: LATANOPROST
     Indication: Product used for unknown indication
     Dosage: 50 MICROGRAM/MILLILITER, ONCE A DAY (50 ?G/ML, 0-0-0-1, TROPFEN )
  8. METAMIZOL [Concomitant]
     Active Substance: METAMIZOLE SODIUM
     Indication: Product used for unknown indication
     Dosage: 500 MILLIGRAM PER MILLILITRE(500 MG/ML, BEDARF, TROPFEN )
     Route: 048
  9. PANTOPRAZOLE SODIUM [Concomitant]
     Active Substance: PANTOPRAZOLE SODIUM
     Indication: Product used for unknown indication
     Dosage: 40 MILLIGRAM, ONCE A DAY (40 MG, 1-0-0-0, TABLETTEN)
     Route: 048
  10. PHENPROCOUMON [Concomitant]
     Active Substance: PHENPROCOUMON
     Indication: Product used for unknown indication
     Dosage: 3 MILLIGRAM, ONCE A DAY(3 MG, 1-0-0-0, TABLETTEN)
     Route: 048
  11. RANEXA [Concomitant]
     Active Substance: RANOLAZINE
     Indication: Product used for unknown indication
     Dosage: 375 MILLIGRAM, TWO TIMES A DAY(375 MG, 1-0-1-0, TABLETTEN)
     Route: 048
  12. TORSEMIDE [Concomitant]
     Active Substance: TORSEMIDE
     Indication: Product used for unknown indication
     Dosage: 2.5 MILLIGRAM, ONCE A DAY(2.5 MG, 1-0-0-0, TABLETTEN)
     Route: 048
  13. TAMSULOSIN [Concomitant]
     Active Substance: TAMSULOSIN
     Indication: Product used for unknown indication
     Dosage: 0.4 MILLIGRAM, ONCE A DAY(0.4 MG, 0-0-1-0, RETARD-KAPSELN)
     Route: 048

REACTIONS (4)
  - Urosepsis [Unknown]
  - Nocturia [Unknown]
  - Pyrexia [Unknown]
  - Product administration error [Unknown]

NARRATIVE: CASE EVENT DATE: 20200209
